FAERS Safety Report 8351403-4 (Version None)
Quarter: 2012Q2

REPORT INFORMATION
  Report Type: 
  Country: None (occurrence: None)
  Receive Date: 20120510
  Receipt Date: 20120501
  Transmission Date: 20120825
  Serious: Yes (Other)
  Sender: FDA-Public Use
  Company Number: US-ASTRAZENECA-2012SE28281

PATIENT
  Sex: Female

DRUGS (5)
  1. TOPROL-XL [Suspect]
     Route: 048
  2. COUMADIN [Concomitant]
  3. TOPROL-XL [Suspect]
     Route: 048
  4. ASPIRIN [Concomitant]
  5. NEXIUM [Suspect]
     Route: 048

REACTIONS (4)
  - GASTROOESOPHAGEAL REFLUX DISEASE [None]
  - THROMBOSIS [None]
  - HYPERTENSION [None]
  - ULCER [None]
